FAERS Safety Report 8029940-1 (Version None)
Quarter: 2012Q1

REPORT INFORMATION
  Report Type: 
  Country: None (occurrence: None)
  Receive Date: 20120109
  Receipt Date: 20111117
  Transmission Date: 20120608
  Serious: Yes (Other)
  Sender: FDA-Public Use
  Company Number: CA-JNJFOC-20111010184

PATIENT
  Sex: Female
  Weight: 128 kg

DRUGS (1)
  1. REMICADE [Suspect]
     Indication: CROHN'S DISEASE
     Route: 042
     Dates: start: 20101217

REACTIONS (2)
  - CHOLECYSTITIS ACUTE [None]
  - PERITONSILLAR ABSCESS [None]
